FAERS Safety Report 7276810-2 (Version None)
Quarter: 2011Q1

REPORT INFORMATION
  Report Type: 
  Country: None (occurrence: None)
  Receive Date: 20110207
  Receipt Date: 20110126
  Transmission Date: 20110831
  Serious: Yes (Hospitalization)
  Sender: FDA-Public Use
  Company Number: US-BIOGENIDEC-2010BI036483

PATIENT
  Age: 50 Year
  Sex: Female

DRUGS (26)
  1. REQUIP [Concomitant]
     Indication: SLEEP DISORDER
     Dates: start: 20090101
  2. CELEXA [Concomitant]
     Indication: DEPRESSION
     Dates: start: 19970101
  3. MACROBID [Concomitant]
     Indication: URINARY RETENTION
     Dates: start: 19970101
  4. ACIPHEX [Concomitant]
     Indication: GASTROOESOPHAGEAL REFLUX DISEASE
     Dates: start: 19970101
  5. TYSABRI [Suspect]
     Indication: MULTIPLE SCLEROSIS
     Route: 042
     Dates: start: 20100507
  6. ACAI [Concomitant]
     Dates: start: 20110101
  7. LISINOPRIL [Concomitant]
     Indication: HYPERTENSION
     Dates: start: 19970101
  8. ZOCOR [Concomitant]
     Indication: BLOOD CHOLESTEROL INCREASED
     Dates: start: 19970101
  9. ASPIRIN [Concomitant]
  10. OSTEO BI-FLEX [Concomitant]
     Indication: ARTHROPATHY
     Dates: start: 20020101
  11. MULTI-VITAMIN [Concomitant]
  12. VITAMIN B-12 [Concomitant]
  13. QUILL Q-10 [Concomitant]
     Dates: start: 20110101
  14. VITAMIN D [Concomitant]
     Indication: OSTEOPOROSIS
     Dates: start: 19970101
  15. ASCORBIC ACID [Concomitant]
  16. PAIN MEDICATION (NOS) [Concomitant]
     Indication: PHLEBITIS
     Dates: start: 20070101
  17. LORATADINE [Concomitant]
     Indication: MULTIPLE ALLERGIES
  18. IRON [Concomitant]
     Indication: ANAEMIA
     Dates: start: 19850101
  19. NEURONTIN [Concomitant]
     Indication: PAIN
     Dates: start: 20040101
  20. NAPROSYN [Concomitant]
     Indication: PAIN
     Dates: start: 19970101
  21. AVONEX [Concomitant]
     Indication: MULTIPLE SCLEROSIS
     Route: 030
     Dates: start: 19971110
  22. BACLOFEN [Concomitant]
     Indication: BLADDER SPASM
     Dates: start: 19970101
  23. KLONOPIN [Concomitant]
     Indication: TREMOR
     Dates: start: 19970101
  24. ZANTAC [Concomitant]
     Indication: GASTROOESOPHAGEAL REFLUX DISEASE
     Dates: start: 20070101
  25. DITROPAN [Concomitant]
     Indication: URINARY INCONTINENCE
     Dates: start: 19880101
  26. CALCIUM [Concomitant]
     Indication: OSTEOPOROSIS
     Dates: start: 20000101

REACTIONS (20)
  - LOWER EXTREMITY MASS [None]
  - PAIN IN EXTREMITY [None]
  - DEHYDRATION [None]
  - ROTATOR CUFF SYNDROME [None]
  - RASH [None]
  - INCISION SITE HAEMORRHAGE [None]
  - FALL [None]
  - GASTROENTERITIS VIRAL [None]
  - ONYCHOCLASIS [None]
  - CARPAL TUNNEL SYNDROME [None]
  - DERMATITIS INFECTED [None]
  - DRY SKIN [None]
  - ONYCHALGIA [None]
  - EXOSTOSIS [None]
  - ROTATOR CUFF REPAIR [None]
  - HOT FLUSH [None]
  - ERYTHEMA [None]
  - FATIGUE [None]
  - LIMB CRUSHING INJURY [None]
  - NASOPHARYNGITIS [None]
